FAERS Safety Report 7585027-3 (Version None)
Quarter: 2011Q2

REPORT INFORMATION
  Report Type: 
  Country: None (occurrence: None)
  Receive Date: 20110630
  Receipt Date: 20110627
  Transmission Date: 20111010
  Serious: Yes (Other)
  Sender: FDA-Public Use
  Company Number: JP-MERCK-1106USA03896

PATIENT
  Age: 58 Year
  Sex: Female

DRUGS (7)
  1. ACTOS [Concomitant]
     Dosage: THE DIVIDED DOSE FREQUENCY IS UNCERTAIN
     Route: 048
  2. CRESTOR [Concomitant]
     Dosage: THE DIVIDED DOSE FREQUENCY IS UNCERTAIN
     Route: 048
  3. CONIEL [Concomitant]
     Dosage: THE DIVIDED DOSE FREQUENCY IS UNCERTAIN
     Route: 048
  4. JANUVIA [Suspect]
     Route: 048
     Dates: start: 20110401, end: 20110601
  5. AMARYL [Concomitant]
     Dosage: THE DIVIDED DOSE FREQUENCY IS UNCERTAIN
     Route: 048
  6. BASEN [Concomitant]
     Dosage: THE DIVIDED DOSE FREQUENCY IS UNCERTAIN
     Route: 048
  7. TANATRIL [Concomitant]
     Dosage: THE DIVIDED DOSE FREQUENCY IS UNCERTAIN
     Route: 048

REACTIONS (1)
  - RHEUMATOID ARTHRITIS [None]
